FAERS Safety Report 12867118 (Version 1)
Quarter: 2016Q4

REPORT INFORMATION
  Report Type: Spontaneous
  Country: US (occurrence: US)
  Receive Date: 20161020
  Receipt Date: 20161020
  Transmission Date: 20170207
  Serious: No
  Sender: FDA-Public Use
  Company Number: US-JAZZ-2016-US-014704

PATIENT
  Sex: Female

DRUGS (30)
  1. ATORVASTATIN [Concomitant]
     Active Substance: ATORVASTATIN
  2. PROVIGIL [Concomitant]
     Active Substance: MODAFINIL
  3. VITAMIN D3 [Concomitant]
     Active Substance: CHOLECALCIFEROL
  4. MODAFINIL. [Concomitant]
     Active Substance: MODAFINIL
  5. OXYCODONE HYDROCHLORIDE. [Concomitant]
     Active Substance: OXYCODONE HYDROCHLORIDE
  6. POLYETHYLENE GLYCOL [Concomitant]
     Active Substance: POLYETHYLENE GLYCOLS
  7. LISINOPRIL. [Concomitant]
     Active Substance: LISINOPRIL
  8. NABUMETONE. [Concomitant]
     Active Substance: NABUMETONE
  9. WELLBUTRIN [Concomitant]
     Active Substance: BUPROPION HYDROCHLORIDE
  10. CLONAZEPAM. [Concomitant]
     Active Substance: CLONAZEPAM
  11. DOCUSATE SODIUM. [Concomitant]
     Active Substance: DOCUSATE SODIUM
  12. NORCO [Concomitant]
     Active Substance: ACETAMINOPHEN\HYDROCODONE BITARTRATE
  13. RELAFEN [Concomitant]
     Active Substance: NABUMETONE
  14. VAGIFEM [Concomitant]
     Active Substance: ESTRADIOL
  15. VICODIN [Concomitant]
     Active Substance: ACETAMINOPHEN\HYDROCODONE BITARTRATE
  16. MEDROL [Concomitant]
     Active Substance: METHYLPREDNISOLONE
  17. MORPHINE SULF [Concomitant]
     Active Substance: MORPHINE SULFATE
  18. XYREM [Suspect]
     Active Substance: SODIUM OXYBATE
     Dosage: DOSE ADJUSTMENTS
     Route: 048
     Dates: start: 201108, end: 2011
  19. OXYCONTIN [Concomitant]
     Active Substance: OXYCODONE HYDROCHLORIDE
  20. MIRALAX [Concomitant]
     Active Substance: POLYETHYLENE GLYCOL 3350
  21. ADDERALL [Concomitant]
     Active Substance: AMPHETAMINE ASPARTATE\AMPHETAMINE SULFATE\DEXTROAMPHETAMINE SACCHARATE\DEXTROAMPHETAMINE SULFATE
  22. BYSTOLIC [Concomitant]
     Active Substance: NEBIVOLOL HYDROCHLORIDE
  23. ETODOLAC. [Concomitant]
     Active Substance: ETODOLAC
  24. LIPITOR [Concomitant]
     Active Substance: ATORVASTATIN CALCIUM
  25. PENICILLIN [Concomitant]
     Active Substance: PENICILLIN
  26. BACLOFEN. [Concomitant]
     Active Substance: BACLOFEN
  27. BUTRANS [Concomitant]
     Active Substance: BUPRENORPHINE
  28. FLUCONAZOLE. [Concomitant]
     Active Substance: FLUCONAZOLE
  29. XYREM [Suspect]
     Active Substance: SODIUM OXYBATE
     Indication: NARCOLEPSY
     Dosage: 2.25 G, BID
     Route: 048
     Dates: start: 201108, end: 201108
  30. XYREM [Suspect]
     Active Substance: SODIUM OXYBATE
     Dosage: 4.5 G, BID
     Route: 048
     Dates: start: 2011

REACTIONS (2)
  - Constipation [Recovered/Resolved]
  - Fatigue [Not Recovered/Not Resolved]
